FAERS Safety Report 10574088 (Version 2)
Quarter: 2015Q1

REPORT INFORMATION
  Report Type: Spontaneous
  Country: US (occurrence: US)
  Receive Date: 20141110
  Receipt Date: 20150216
  Transmission Date: 20150720
  Serious: Yes (Hospitalization, Other)
  Sender: FDA-Public Use
  Company Number: US-ABBVIE-14P-163-1304999-00

PATIENT
  Age: 55 Year
  Sex: Male

DRUGS (1)
  1. ANDROGEL [Suspect]
     Active Substance: TESTOSTERONE
     Indication: BLOOD TESTOSTERONE DECREASED
     Route: 062

REACTIONS (10)
  - Fear [Unknown]
  - Pulmonary embolism [Unknown]
  - Injury [Unknown]
  - Economic problem [Unknown]
  - Myocardial infarction [Unknown]
  - Anhedonia [Unknown]
  - Emotional distress [Unknown]
  - Basal ganglia stroke [Unknown]
  - Deep vein thrombosis [Unknown]
  - Social problem [Unknown]

NARRATIVE: CASE EVENT DATE: 20130509
